FAERS Safety Report 7807913-9 (Version None)
Quarter: 2011Q4

REPORT INFORMATION
  Report Type: 
  Country: None (occurrence: None)
  Receive Date: 20111011
  Receipt Date: 20111005
  Transmission Date: 20120403
  Serious: Yes (Hospitalization)
  Sender: FDA-Public Use
  Company Number: FR-BAYER-2011-026555

PATIENT
  Age: 64 Year
  Sex: Female

DRUGS (9)
  1. LASIX [Suspect]
     Dosage: UNK
     Dates: start: 20110106, end: 20110114
  2. CEFTRIAXONE [Suspect]
     Dosage: UNK
     Dates: start: 20101217, end: 20101217
  3. CIPROFLOXACIN [Suspect]
     Dosage: UNK
     Dates: start: 20101217, end: 20101226
  4. CIPROFLOXACIN [Suspect]
     Dosage: UNK
     Dates: start: 20110107, end: 20110110
  5. LASIX [Suspect]
     Dosage: UNK
     Dates: start: 20101228, end: 20101228
  6. LASIX [Suspect]
     Dosage: UNK
     Dates: start: 20110101, end: 20110101
  7. AMOXICILLIN TRIHYDRATE [Suspect]
     Dosage: UNK
     Dates: start: 20101216, end: 20101216
  8. NEXIUM [Suspect]
     Dosage: UNK
     Dates: start: 20101217, end: 20110126
  9. LASIX [Suspect]
     Dosage: UNK
     Dates: start: 20101218, end: 20101221

REACTIONS (9)
  - BLISTER [None]
  - DRUG RASH WITH EOSINOPHILIA AND SYSTEMIC SYMPTOMS [None]
  - PRURITUS [None]
  - RASH GENERALISED [None]
  - BURNING SENSATION [None]
  - EOSINOPHILIA [None]
  - ORAL DISORDER [None]
  - SKIN EXFOLIATION [None]
  - SKIN EROSION [None]
